APPROVED DRUG PRODUCT: ARIKAYCE KIT
Active Ingredient: AMIKACIN SULFATE
Strength: EQ 590MG BASE/8.4ML
Dosage Form/Route: SUSPENSION, LIPOSOMAL;INHALATION
Application: N207356 | Product #001
Applicant: INSMED INC
Approved: Sep 28, 2018 | RLD: Yes | RS: Yes | Type: RX

PATENTS:
Patent 8679532 | Expires: Dec 5, 2026
Patent 9566234 | Expires: Jan 18, 2034
Patent 8632804 | Expires: Dec 5, 2026
Patent 10251900 | Expires: May 15, 2035
Patent 12377114 | Expires: May 15, 2035
Patent 9895385 | Expires: May 15, 2035
Patent 12016873 | Expires: May 15, 2035
Patent 10751355 | Expires: May 15, 2035
Patent 11446318 | Expires: May 15, 2035
Patent 12168022 | Expires: May 15, 2035
Patent 12168021 | Expires: May 15, 2035
Patent 8226975 | Expires: Aug 15, 2028
Patent 8642075 | Expires: Dec 5, 2026

EXCLUSIVITY:
Code: ODE-214 | Date: Sep 28, 2025
Code: GAIN | Date: Sep 28, 2030